FAERS Safety Report 5045652-0 (Version None)
Quarter: 2006Q3

REPORT INFORMATION
  Report Type: 
  Country: None (occurrence: None)
  Receive Date: 20060707
  Receipt Date: 20060223
  Transmission Date: 20061208
  Serious: Yes (Hospitalization)
  Sender: FDA-Public Use
  Company Number: JP-BOEHRINGER INGELHEIM PHARMACEUTICALS, INC.-2006-BP-02063NB

PATIENT
  Sex: Male
  Weight: 64 kg

DRUGS (6)
  1. MICARDIS [Suspect]
     Indication: ESSENTIAL HYPERTENSION
     Route: 048
     Dates: start: 20040305, end: 20040814
  2. HANGE-BYAKUJUTSUTEMMA-TO  HANGE-BYAKUJUTSU-TEMMA-TO [Concomitant]
     Indication: DIZZINESS
     Route: 048
     Dates: start: 20031110, end: 20040814
  3. PAXIL [Concomitant]
     Indication: NEUROSIS
     Route: 048
     Dates: start: 20020725, end: 20040903
  4. MELEX [Concomitant]
     Indication: NEUROSIS
     Route: 048
     Dates: start: 20040224, end: 20040814
  5. DOGMATYL [Concomitant]
     Indication: NEUROSIS
     Route: 048
     Dates: start: 20040224, end: 20040814
  6. ATARAX [Concomitant]
     Indication: NEUROSIS
     Route: 048
     Dates: start: 20040224, end: 20040814

REACTIONS (1)
  - PANCREATITIS ACUTE [None]
